FAERS Safety Report 5542146-0 (Version None)
Quarter: 2007Q4

REPORT INFORMATION
  Report Type: 
  Country: None (occurrence: None)
  Receive Date: 20071210
  Receipt Date: 20070828
  Transmission Date: 20080405
  Serious: No
  Sender: FDA-Public Use
  Company Number: US-AMGEN-KDL240756

PATIENT
  Sex: Female

DRUGS (11)
  1. ENBREL [Suspect]
     Indication: PSORIATIC ARTHROPATHY
     Route: 058
  2. FENTANYL [Concomitant]
  3. UNSPECIFIED MEDICATION [Concomitant]
  4. ZANAFLEX [Concomitant]
  5. ARTHROTEC [Concomitant]
  6. WELLBUTRIN [Concomitant]
  7. SYNTHROID [Concomitant]
  8. LOESTRIN 1.5/30 [Concomitant]
  9. PREVACID [Concomitant]
  10. PREDNISONE [Concomitant]
  11. CLONAZEPAM [Concomitant]

REACTIONS (2)
  - PAIN [None]
  - VIRAL INFECTION [None]
